FAERS Safety Report 10216137 (Version 1)
Quarter: 2014Q2

REPORT INFORMATION
  Report Type: Spontaneous
  Country: US (occurrence: None)
  Receive Date: 20140603
  Receipt Date: 20140603
  Transmission Date: 20141212
  Serious: Yes (Other)
  Sender: FDA-Public Use
  Company Number: None

PATIENT
  Age: 60 Year
  Sex: Female
  Weight: 55.34 kg

DRUGS (1)
  1. AMITRIPTYLINE 25 MG [Suspect]
     Indication: DEPRESSION
     Dosage: 1/2 TO 1 TABLET, ONCE DAILY, TAKEN BY MOUTH
     Route: 048

REACTIONS (3)
  - Agitation [None]
  - Terminal insomnia [None]
  - Suicidal ideation [None]
